FAERS Safety Report 9935055 (Version 1)
Quarter: 2014Q1

REPORT INFORMATION
  Report Type: Spontaneous
  Country: PE (occurrence: PE)
  Receive Date: 20140228
  Receipt Date: 20140228
  Transmission Date: 20141002
  Serious: Yes (Other)
  Sender: FDA-Public Use
  Company Number: PE-PFIZER INC-2014053708

PATIENT
  Age: 89 Year
  Sex: Male

DRUGS (2)
  1. XALATAN [Suspect]
     Route: 047
  2. ALPHAGAN [Concomitant]
     Route: 047

REACTIONS (1)
  - Blindness [Not Recovered/Not Resolved]
